FAERS Safety Report 17192087 (Version 4)
Quarter: 2020Q1

REPORT INFORMATION
  Report Type: Spontaneous
  Country: JP (occurrence: JP)
  Receive Date: 20191223
  Receipt Date: 20200102
  Transmission Date: 20200409
  Serious: Yes (Death, Other)
  Sender: FDA-Public Use
  Company Number: JP-PFIZER INC-2019551132

PATIENT
  Age: 71 Year
  Sex: Female
  Weight: 34 kg

DRUGS (47)
  1. SEROQUEL [Interacting]
     Active Substance: QUETIAPINE FUMARATE
     Indication: NAUSEA
     Dosage: 12.5 MG, 1X/DAY
     Route: 048
     Dates: start: 20160912, end: 20160923
  2. METHAPAIN [Interacting]
     Active Substance: METHADONE HYDROCHLORIDE
     Dosage: 15 MG, 3X/DAY
     Route: 048
     Dates: start: 20160928, end: 20161006
  3. METHAPAIN [Interacting]
     Active Substance: METHADONE HYDROCHLORIDE
     Dosage: 15 MG, 3X/DAY
     Route: 048
     Dates: start: 20161011, end: 20161011
  4. METHAPAIN [Interacting]
     Active Substance: METHADONE HYDROCHLORIDE
     Dosage: 10 MG, 2X/DAY
     Route: 048
     Dates: start: 20161101
  5. SEROQUEL [Interacting]
     Active Substance: QUETIAPINE FUMARATE
     Indication: PANCREATIC CARCINOMA
     Dosage: 25 MG, 1X/DAY
     Route: 048
     Dates: start: 20160924, end: 20161011
  6. METHAPAIN [Interacting]
     Active Substance: METHADONE HYDROCHLORIDE
     Indication: PANCREATIC CARCINOMA
     Dosage: 20 MG, DAILY
     Route: 048
  7. OXINORM (OXYCODONE HYDROCHLORIDE) [Suspect]
     Active Substance: OXYCODONE HYDROCHLORIDE
     Dosage: 10 MG, 1X/DAY
     Route: 048
     Dates: start: 20161013
  8. ELIQUIS [Concomitant]
     Active Substance: APIXABAN
     Indication: CEREBRAL ISCHAEMIA
     Dosage: 2.5 MG, 2X/DAY
     Route: 048
     Dates: start: 20160924, end: 20161005
  9. SOLITA-T3 [Concomitant]
     Active Substance: POTASSIUM CHLORIDE\SODIUM CHLORIDE\SODIUM LACTATE
     Dosage: 500 ML, DAILY
     Route: 065
     Dates: start: 20161001, end: 20161010
  10. LYRICA [Suspect]
     Active Substance: PREGABALIN
     Indication: OSTEOMA
  11. METHAPAIN [Interacting]
     Active Substance: METHADONE HYDROCHLORIDE
     Indication: PAIN
     Dosage: 5 MG, 3X/DAY
     Route: 048
  12. METHAPAIN [Interacting]
     Active Substance: METHADONE HYDROCHLORIDE
     Dosage: 5 MG, 3X/DAY
     Route: 048
     Dates: start: 20161009, end: 20161009
  13. POLARAMINE [Concomitant]
     Active Substance: DEXCHLORPHENIRAMINE MALEATE
     Dosage: 4 MG/DAY, UNKNOWN FREQ.
     Route: 048
     Dates: start: 20161006, end: 20161011
  14. CLONAZEPAM. [Concomitant]
     Active Substance: CLONAZEPAM
     Dosage: 0.5 MG, 1X/DAY
     Route: 065
  15. PHYSIO 35 [Concomitant]
     Active Substance: ELECTROLYTES NOS
     Dosage: 500 ML, DAILY
     Route: 065
     Dates: start: 20161012, end: 20161012
  16. PHYSIO 35 [Concomitant]
     Active Substance: ELECTROLYTES NOS
     Dosage: 1000 ML, DAILY
     Route: 065
     Dates: start: 20161013
  17. LYRICA [Suspect]
     Active Substance: PREGABALIN
     Indication: PANCREATIC CARCINOMA
     Dosage: 75 MG, 2X/DAY
     Route: 048
     Dates: end: 20161011
  18. METHAPAIN [Interacting]
     Active Substance: METHADONE HYDROCHLORIDE
     Dosage: 5 MG, 3X/DAY
     Route: 048
     Dates: start: 20161013
  19. OXINORM (OXYCODONE HYDROCHLORIDE) [Suspect]
     Active Substance: OXYCODONE HYDROCHLORIDE
     Dosage: 10 MG, 3X/DAY
     Route: 048
     Dates: start: 20161008, end: 20161008
  20. SOLITA-T1 [Concomitant]
     Dosage: 500 ML, 1X/DAY
     Route: 065
  21. GLUCOSE [Concomitant]
     Active Substance: DEXTROSE
     Dosage: 40 ML, DAILY
     Route: 065
     Dates: start: 20161011, end: 20161012
  22. POLARAMINE [Concomitant]
     Active Substance: DEXCHLORPHENIRAMINE MALEATE
     Indication: PANCREATIC CARCINOMA
     Dosage: 2 MG, 1X/DAY
     Route: 048
     Dates: start: 20160923, end: 20160923
  23. POLARAMINE [Concomitant]
     Active Substance: DEXCHLORPHENIRAMINE MALEATE
     Dosage: 2 MG, UNK
     Route: 048
     Dates: start: 20160926, end: 20161005
  24. PLAS AMINO [Concomitant]
     Dosage: 500 ML, UNK
     Route: 065
     Dates: start: 20161012
  25. METHAPAIN [Interacting]
     Active Substance: METHADONE HYDROCHLORIDE
     Dosage: 10 MG, 3X/DAY
     Route: 048
     Dates: start: 20160924, end: 20160925
  26. OXINORM (OXYCODONE HYDROCHLORIDE) [Suspect]
     Active Substance: OXYCODONE HYDROCHLORIDE
     Dosage: 10 MG, 4X/DAY
     Route: 048
     Dates: start: 20160924, end: 20160925
  27. OXINORM (OXYCODONE HYDROCHLORIDE) [Suspect]
     Active Substance: OXYCODONE HYDROCHLORIDE
     Dosage: 10 MG, 1X/DAY
     Route: 048
     Dates: start: 20161009, end: 20161009
  28. ELIQUIS [Concomitant]
     Active Substance: APIXABAN
     Dosage: 10 MG, 1X/DAY
     Route: 048
     Dates: start: 20161006, end: 20161011
  29. ZYPREXA [Concomitant]
     Active Substance: OLANZAPINE
     Indication: NAUSEA
     Dosage: 2.5 MG, 1X/DAY
     Route: 065
     Dates: end: 20160911
  30. VITAMEDIN [BENFOTIAMINE;CYANOCOBALAMIN;PYRIDOXINE HYDROCHLORIDE] [Concomitant]
     Dosage: UNK
     Route: 042
  31. CELECOXIB. [Suspect]
     Active Substance: CELECOXIB
     Indication: OSTEOMA
  32. METOCLOPRAMIDE. [Suspect]
     Active Substance: METOCLOPRAMIDE
     Dosage: UNK UNK, UNKNOWN FREQ
     Route: 065
  33. METHAPAIN [Interacting]
     Active Substance: METHADONE HYDROCHLORIDE
     Dosage: 10 MG, 3X/DAY
     Route: 048
     Dates: start: 20160927, end: 20160927
  34. METHAPAIN [Interacting]
     Active Substance: METHADONE HYDROCHLORIDE
     Dosage: 10 MG, 3X/DAY
     Route: 048
     Dates: start: 20161007, end: 20161007
  35. METHAPAIN [Interacting]
     Active Substance: METHADONE HYDROCHLORIDE
     Dosage: 15 MG, 3X/DAY
     Route: 048
     Dates: start: 20161008, end: 20161008
  36. METHAPAIN [Interacting]
     Active Substance: METHADONE HYDROCHLORIDE
     Dosage: 10 MG, 3X/DAY
     Route: 048
     Dates: start: 20161012, end: 20161012
  37. OXINORM (OXYCODONE HYDROCHLORIDE) [Suspect]
     Active Substance: OXYCODONE HYDROCHLORIDE
     Indication: PANCREATIC CARCINOMA
     Dosage: 20-60 MG/DAY, POWDER, METEREDFREQ.
     Route: 048
  38. OXINORM (OXYCODONE HYDROCHLORIDE) [Suspect]
     Active Substance: OXYCODONE HYDROCHLORIDE
     Indication: OSTEOMA
     Dosage: 10 MG, THRICE DAILY, BEFORE EACH MEAL
     Route: 048
     Dates: end: 20160923
  39. OXINORM (OXYCODONE HYDROCHLORIDE) [Suspect]
     Active Substance: OXYCODONE HYDROCHLORIDE
     Dosage: 10 MG, 3X/DAY
     Route: 048
     Dates: start: 20161010, end: 20161011
  40. SOLITA-T3 [Concomitant]
     Active Substance: POTASSIUM CHLORIDE\SODIUM CHLORIDE\SODIUM LACTATE
     Dosage: 500 ML, DAILY
     Route: 065
     Dates: start: 20161012, end: 20161012
  41. CELECOXIB. [Suspect]
     Active Substance: CELECOXIB
     Indication: PANCREATIC CARCINOMA
     Dosage: 100 MG, 2X/DAY
     Route: 048
  42. METHAPAIN [Interacting]
     Active Substance: METHADONE HYDROCHLORIDE
     Indication: OSTEOMA
     Dosage: 15 MG, 3X/DAY
     Route: 048
     Dates: start: 20160912, end: 20160923
  43. METHAPAIN [Interacting]
     Active Substance: METHADONE HYDROCHLORIDE
     Dosage: 15 MG, 3X/DAY
     Route: 048
     Dates: start: 20160926, end: 20190926
  44. METHAPAIN [Interacting]
     Active Substance: METHADONE HYDROCHLORIDE
     Dosage: 10 MG, 3X/DAY
     Route: 048
     Dates: start: 20161010, end: 20161010
  45. OXINORM (OXYCODONE HYDROCHLORIDE) [Suspect]
     Active Substance: OXYCODONE HYDROCHLORIDE
     Dosage: 10 MG, 3X/DAY
     Route: 048
     Dates: start: 20160926, end: 20160926
  46. OXINORM (OXYCODONE HYDROCHLORIDE) [Suspect]
     Active Substance: OXYCODONE HYDROCHLORIDE
     Dosage: 10 MG, 4X/DAY
     Route: 048
     Dates: start: 20160927, end: 20161007
  47. SOLITA-T3 [Concomitant]
     Active Substance: POTASSIUM CHLORIDE\SODIUM CHLORIDE\SODIUM LACTATE
     Dosage: 1500 ML, DAILY
     Route: 065
     Dates: start: 20161011, end: 20161011

REACTIONS (7)
  - Transient ischaemic attack [Recovered/Resolved]
  - Hypoglycaemia [Recovered/Resolved]
  - Hypercoagulation [Recovered/Resolved]
  - Drug interaction [Recovered/Resolved]
  - Hemiplegia [Recovered/Resolved]
  - Depressed level of consciousness [Recovering/Resolving]
  - Off label use [Unknown]

NARRATIVE: CASE EVENT DATE: 20160912
